FAERS Safety Report 19888936 (Version 1)
Quarter: 2021Q3

REPORT INFORMATION
  Report Type: Spontaneous
  Country: RU (occurrence: RU)
  Receive Date: 20210928
  Receipt Date: 20210928
  Transmission Date: 20211014
  Serious: Yes (Hospitalization)
  Sender: FDA-Public Use
  Company Number: RU-TOPROL-2021000214

PATIENT
  Age: 8 Year
  Sex: Male
  Weight: 25 kg

DRUGS (2)
  1. BETALOC [Suspect]
     Active Substance: METOPROLOL
     Dosage: 25.0MG ONCE/SINGLE ADMINISTRATION
     Route: 048
     Dates: start: 20210520, end: 20210520
  2. PRONORAN [Suspect]
     Active Substance: PIRIBEDIL
     Dosage: 50.0MG ONCE/SINGLE ADMINISTRATION
     Route: 048
     Dates: start: 20210520, end: 20210520

REACTIONS (2)
  - Toxicity to various agents [Recovering/Resolving]
  - Accidental exposure to product by child [Recovered/Resolved]

NARRATIVE: CASE EVENT DATE: 20210520
